FAERS Safety Report 17174188 (Version 1)
Quarter: 2019Q4

REPORT INFORMATION
  Report Type: Spontaneous
  Country: US (occurrence: US)
  Receive Date: 20191126
  Receipt Date: 20191126
  Transmission Date: 20200122
  Serious: Yes (Hospitalization)
  Sender: FDA-Public Use
  Company Number: None

PATIENT
  Age: 62 Year
  Sex: Female
  Weight: 89.1 kg

DRUGS (1)
  1. BEVACIZUMAB, 10MG/KG [Suspect]
     Active Substance: BEVACIZUMAB
     Indication: GLIOBLASTOMA MULTIFORME
     Route: 058
     Dates: start: 20190225, end: 20191119

REACTIONS (3)
  - Cerebrovascular accident [None]
  - Dysarthria [None]
  - Facial paralysis [None]

NARRATIVE: CASE EVENT DATE: 20191119
